FAERS Safety Report 7437698-X (Version None)
Quarter: 2011Q2

REPORT INFORMATION
  Report Type: 
  Country: None (occurrence: None)
  Receive Date: 20110426
  Receipt Date: 20110414
  Transmission Date: 20111010
  Serious: Yes (Disabling, Other)
  Sender: FDA-Public Use
  Company Number: US-ROCHE-771670

PATIENT
  Sex: Female

DRUGS (7)
  1. ACTEMRA [Suspect]
     Route: 042
     Dates: start: 20100201
  2. MEDROL [Concomitant]
     Dosage: 2-10 MG ONCE DAILY
  3. LAMOTRIGINE [Concomitant]
     Indication: TRIGEMINAL NEURALGIA
     Dosage: TAKEN EVERY MORNING
  4. ACTEMRA [Suspect]
     Route: 042
     Dates: start: 20110303
  5. ZANTAC [Concomitant]
  6. ACTEMRA [Suspect]
     Indication: RHEUMATOID ARTHRITIS
     Dosage: FORM INFUSION
     Route: 042
     Dates: start: 20110113
  7. ESTRADIOL [Concomitant]
     Indication: HORMONE REPLACEMENT THERAPY

REACTIONS (10)
  - RED BLOOD CELL SEDIMENTATION RATE INCREASED [None]
  - BLOOD ALKALINE PHOSPHATASE INCREASED [None]
  - SINUSITIS [None]
  - MIGRAINE [None]
  - HAEMATOLOGY TEST ABNORMAL [None]
  - ABDOMINAL PAIN [None]
  - HEADACHE [None]
  - EAR INFECTION [None]
  - OEDEMA PERIPHERAL [None]
  - TRANSAMINASES INCREASED [None]
